FAERS Safety Report 15837092 (Version 1)
Quarter: 2019Q1

REPORT INFORMATION
  Report Type: Spontaneous
  Country: US (occurrence: US)
  Receive Date: 20190117
  Receipt Date: 20190117
  Transmission Date: 20190417
  Serious: Yes (Hospitalization)
  Sender: FDA-Public Use
  Company Number: None

PATIENT
  Age: 38 Year
  Sex: Female
  Weight: 91 kg

DRUGS (2)
  1. OCREVUS [Concomitant]
     Active Substance: OCRELIZUMAB
     Dates: start: 20180116, end: 20180629
  2. OCREVUS [Suspect]
     Active Substance: OCRELIZUMAB
     Indication: MULTIPLE SCLEROSIS
     Dosage: ?          OTHER FREQUENCY:Q6 MTHS;?
     Route: 042
     Dates: start: 20180116, end: 20180629

REACTIONS (3)
  - Deep vein thrombosis [None]
  - Infusion related reaction [None]
  - Arthralgia [None]

NARRATIVE: CASE EVENT DATE: 20180727
